FAERS Safety Report 7461398-3 (Version None)
Quarter: 2011Q2

REPORT INFORMATION
  Report Type: 
  Country: None (occurrence: None)
  Receive Date: 20110428
  Receipt Date: 20110210
  Transmission Date: 20111010
  Serious: Yes (Hospitalization)
  Sender: FDA-Public Use
  Company Number: 2011GW000095

PATIENT
  Age: 44 Year
  Sex: Male

DRUGS (13)
  1. AMLODIPINE BESYLATE [Concomitant]
  2. RAPAMUNE [Concomitant]
  3. ACETYL SALICYLIC ACID USP BAT [Concomitant]
  4. RANITIDINE [Concomitant]
  5. ATORVASTATIN [Concomitant]
  6. CYCLOSPORINE [Concomitant]
  7. MYCOPHENOLATE MOFETIL [Concomitant]
  8. AZATHIOPRINE [Concomitant]
  9. PREDNISONE [Concomitant]
  10. FLECAINIDE ACETATE [Concomitant]
  11. PROGRAF [Concomitant]
  12. IMIQUIMOD [Suspect]
     Indication: SKIN PAPILLOMA
     Dosage: 5 PCT;QOD;TOP
     Route: 061
  13. AMIODARONE HCL [Concomitant]

REACTIONS (13)
  - RENAL TRANSPLANT [None]
  - PYREXIA [None]
  - RENAL TUBULAR NECROSIS [None]
  - OROPHARYNGEAL PAIN [None]
  - HAEMATOCRIT [None]
  - RENAL FAILURE ACUTE [None]
  - MALAISE [None]
  - DIZZINESS [None]
  - SKIN PAPILLOMA [None]
  - ANURIA [None]
  - BACK PAIN [None]
  - ASTHENIA [None]
  - HAEMODIALYSIS [None]
